FAERS Safety Report 9831444 (Version 2)
Quarter: 2014Q1

REPORT INFORMATION
  Report Type: Report from Study
  Country: CA (occurrence: CA)
  Receive Date: 20140121
  Receipt Date: 20140122
  Transmission Date: 20141002
  Serious: Yes (Death)
  Sender: FDA-Public Use
  Company Number: PHHY2014CA005960

PATIENT
  Age: 47 Year
  Sex: Male

DRUGS (4)
  1. CLOZARIL [Suspect]
     Indication: SCHIZOAFFECTIVE DISORDER
     Dosage: 400 MG, QD AT NIGHT
     Route: 048
     Dates: start: 20091028, end: 20131204
  2. SEROQUEL [Concomitant]
     Dosage: 400 MG, AT NIGHT
  3. FLUVOXAMINE [Concomitant]
     Dosage: 200 MG, AT NIGHT
  4. DILATINE [Concomitant]
     Dosage: 100 MG, BID

REACTIONS (2)
  - Death [Fatal]
  - Metabolic syndrome [Unknown]
